FAERS Safety Report 10110321 (Version 2)
Quarter: 2014Q4

REPORT INFORMATION
  Report Type: Other
  Country: US (occurrence: US)
  Receive Date: 20140425
  Receipt Date: 20141023
  Transmission Date: 20150528
  Serious: Yes (Hospitalization, Other)
  Sender: FDA-Public Use
  Company Number: US-GSKPPD-2014GSK007640

PATIENT
  Age: 60 Year
  Sex: Male

DRUGS (2)
  1. LOPID [Concomitant]
     Active Substance: GEMFIBROZIL
  2. AVANDIA [Suspect]
     Active Substance: ROSIGLITAZONE MALEATE
     Indication: DIABETES MELLITUS
     Dosage: DATE OF AVANDIA USE COULD NOT BE CONFIRMED IN RECORDS REVIEWED.
     Route: 048

REACTIONS (5)
  - Hypertension [Recovered/Resolved]
  - Myocardial infarction [Unknown]
  - Peripheral vascular disorder [Recovered/Resolved]
  - Cerebrovascular disorder [Recovered/Resolved]
  - Arteriosclerosis coronary artery [Recovered/Resolved]

NARRATIVE: CASE EVENT DATE: 20010521
